FAERS Safety Report 9660113 (Version 1)
Quarter: 2013Q4

REPORT INFORMATION
  Report Type: Spontaneous
  Country: US (occurrence: US)
  Receive Date: 20131031
  Receipt Date: 20131031
  Transmission Date: 20140711
  Serious: No
  Sender: FDA-Public Use
  Company Number: US-ABBVIE-12P-163-1027875-00

PATIENT
  Sex: Female
  Weight: 90.8 kg

DRUGS (2)
  1. BIAXIN [Suspect]
     Indication: UPPER RESPIRATORY TRACT INFECTION
     Dosage: UNKNOWN DOSE
     Dates: start: 2010, end: 2010
  2. VITAMIN D [Concomitant]
     Indication: PRODUCT USED FOR UNKNOWN INDICATION

REACTIONS (1)
  - Urticaria [Recovered/Resolved]
